FAERS Safety Report 8880725 (Version 1)
Quarter: 2012Q4

REPORT INFORMATION
  Report Type: 
  Country: CA (occurrence: CA)
  Receive Date: 20121101
  Receipt Date: 20121101
  Transmission Date: 20130627
  Serious: Yes (Hospitalization)
  Sender: FDA-Public Use
  Company Number: CA-GLAXOSMITHKLINE-A0999339A

PATIENT
  Age: 77 Year
  Sex: Female

DRUGS (7)
  1. ADVAIR [Suspect]
     Indication: ASTHMA
     Dosage: 2PUFF Twice per day
     Route: 055
     Dates: start: 201209, end: 20121028
  2. FLOVENT [Suspect]
  3. VENTOLIN [Suspect]
  4. SYNTHROID [Concomitant]
  5. PANTOLOC [Concomitant]
  6. CELEXA [Concomitant]
  7. PREDNISONE [Concomitant]

REACTIONS (7)
  - Intestinal obstruction [Unknown]
  - Overdose [Unknown]
  - Bronchitis [Unknown]
  - Asthma [Unknown]
  - Swollen tongue [Unknown]
  - Speech disorder [Unknown]
  - Oral infection [Unknown]
